FAERS Safety Report 7965986-7 (Version None)
Quarter: 2011Q4

REPORT INFORMATION
  Report Type: 
  Country: None (occurrence: None)
  Receive Date: 20111208
  Receipt Date: 20111206
  Transmission Date: 20120403
  Serious: Yes (Death, Other)
  Sender: FDA-Public Use
  Company Number: CA-ABBOTT-11P-028-0855144-00

PATIENT
  Sex: Male
  Weight: 77.18 kg

DRUGS (1)
  1. LUPRON DEPOT [Suspect]
     Indication: PROSTATE CANCER
     Route: 030
     Dates: end: 20110501

REACTIONS (2)
  - DEATH [None]
  - FEMORAL NECK FRACTURE [None]
